FAERS Safety Report 8218512-1 (Version None)
Quarter: 2012Q1

REPORT INFORMATION
  Report Type: 
  Country: None (occurrence: None)
  Receive Date: 20120319
  Receipt Date: 20120105
  Transmission Date: 20120608
  Serious: Yes (Hospitalization)
  Sender: FDA-Public Use
  Company Number: IT-VALEANT-2012VX001216

PATIENT
  Age: 70 Year
  Sex: Female

DRUGS (4)
  1. FLUOROURACIL [Suspect]
     Dosage: DOSE UNIT:225
     Route: 042
     Dates: end: 20090224
  2. PANITUMUMAB [Suspect]
     Route: 042
     Dates: start: 20090127, end: 20090224
  3. THERAPEUTIC RADIOPHARMACEUTICALS [Concomitant]
     Route: 065
  4. ELOXATIN [Suspect]
     Route: 042
     Dates: end: 20090224

REACTIONS (2)
  - DIARRHOEA [None]
  - ENTEROCOLITIS [None]
